FAERS Safety Report 4655040-4 (Version None)
Quarter: 2005Q2

REPORT INFORMATION
  Report Type: 
  Country: None (occurrence: None)
  Receive Date: 20050504
  Receipt Date: 20050420
  Transmission Date: 20051028
  Serious: Yes (Hospitalization)
  Sender: FDA-Public Use
  Company Number: 2005063446

PATIENT
  Age: 72 Year
  Sex: Male
  Weight: 89.8122 kg

DRUGS (15)
  1. CELEBREX [Suspect]
     Indication: ARTHRITIS
     Dosage: ORAL
     Route: 048
  2. BEXTRA [Suspect]
     Indication: ARTHRITIS
  3. ASPIRIN [Suspect]
     Indication: ANALGESIC INTERVENTION SUPPORTIVE THERAPY
     Dosage: 81 MG (81 MG, 1 IN 1 D), ORAL
     Route: 048
     Dates: start: 19990101
  4. ROFECOXIB [Suspect]
     Indication: ARTHRITIS
     Dosage: ORAL
     Route: 048
  5. ATORVASTATIN CALCIUM [Concomitant]
  6. ROSIGLITAZONE MALEATE [Concomitant]
  7. MULTIVITAMINS (ASCORBIC ACID, ERGOCALCIFEROL, FOLIC ACID, NICOTINAMIDE [Concomitant]
  8. FLUCONAOLZE (FLUCONAZOLE) [Concomitant]
  9. RAMIPRIL [Concomitant]
  10. BACTRIM [Concomitant]
  11. ATENOLOL [Concomitant]
  12. TOCOPHEROL (TOCOPHEROL) [Concomitant]
  13. TRAZODONE HCL [Concomitant]
  14. ACETAMINOPHEN [Concomitant]
  15. VARDENAFIL (VARDENAFIL) [Concomitant]

REACTIONS (14)
  - ATRIOVENTRICULAR BLOCK FIRST DEGREE [None]
  - AZOTAEMIA [None]
  - BENIGN PROSTATIC HYPERPLASIA [None]
  - BLOOD PRESSURE DIASTOLIC DECREASED [None]
  - CHEST PAIN [None]
  - DIZZINESS [None]
  - EPIGASTRIC DISCOMFORT [None]
  - FEELING HOT [None]
  - GASTROINTESTINAL HAEMORRHAGE [None]
  - HAEMATOCRIT DECREASED [None]
  - HAEMOGLOBIN DECREASED [None]
  - HEADACHE [None]
  - HYPERHIDROSIS [None]
  - ULCER HAEMORRHAGE [None]
